FAERS Safety Report 7359613-X (Version None)
Quarter: 2011Q1

REPORT INFORMATION
  Report Type: 
  Country: None (occurrence: None)
  Receive Date: 20110317
  Receipt Date: 20100129
  Transmission Date: 20110831
  Serious: No
  Sender: FDA-Public Use
  Company Number: US-PFIZER INC-2010013337

PATIENT
  Sex: Female
  Weight: 57.15 kg

DRUGS (2)
  1. HYDROCHLOROTHIAZIDE [Suspect]
     Indication: HEADACHE
     Dosage: 25 MG, UNK
  2. NORVASC [Suspect]
     Indication: HYPERTENSION
     Dosage: 20 MG, 1X/DAY
     Route: 048

REACTIONS (4)
  - WEIGHT DECREASED [None]
  - HEADACHE [None]
  - PANIC REACTION [None]
  - LIP DRY [None]
